FAERS Safety Report 17295331 (Version 1)
Quarter: 2020Q1

REPORT INFORMATION
  Report Type: Spontaneous
  Country: CZ (occurrence: CZ)
  Receive Date: 20200121
  Receipt Date: 20200121
  Transmission Date: 20200409
  Serious: Yes (Other)
  Sender: FDA-Public Use
  Company Number: CZ-MYLANLABS-2020M1004868

PATIENT
  Sex: Male

DRUGS (7)
  1. DOCETAXEL. [Suspect]
     Active Substance: DOCETAXEL
     Indication: PROSTATE CANCER
     Dosage: TOTAL 10 CYCLES
     Dates: start: 20130218
  2. CALCIUM [Concomitant]
     Active Substance: CALCIUM
     Dosage: UNK
  3. RADIUM [Suspect]
     Active Substance: RADIUM
     Indication: PROSTATE CANCER
     Dosage: UNK
     Route: 065
     Dates: start: 20150630
  4. PREDNISONE. [Concomitant]
     Active Substance: PREDNISONE
     Dosage: 5-5-0 MG
  5. VITAMIN D                          /07503901/ [Concomitant]
     Active Substance: VITAMIN D NOS
     Dosage: UNK
  6. ZOLEDRONIC ACID [Suspect]
     Active Substance: ZOLEDRONIC ACID
     Indication: PROSTATE CANCER
     Dosage: 4 MILLIGRAM, MONTHLY
     Route: 042
     Dates: start: 20110228
  7. ENZALUTAMIDE [Concomitant]
     Active Substance: ENZALUTAMIDE
     Indication: PROSTATE CANCER
     Route: 065
     Dates: start: 20161122

REACTIONS (1)
  - Osteonecrosis of jaw [Recovered/Resolved]
